FAERS Safety Report 5069811-6 (Version None)
Quarter: 2006Q3

REPORT INFORMATION
  Report Type: 
  Country: None (occurrence: None)
  Receive Date: 20060801
  Receipt Date: 20060801
  Transmission Date: 20061208
  Serious: Yes (Hospitalization)
  Sender: FDA-Public Use
  Company Number: None

PATIENT
  Age: 55 Year
  Sex: Female

DRUGS (1)
  1. LORAZEPAM [Suspect]

REACTIONS (4)
  - CONFUSIONAL STATE [None]
  - OXYGEN SATURATION DECREASED [None]
  - RESPIRATORY DEPRESSION [None]
  - SEDATION [None]
